FAERS Safety Report 7068401-3 (Version None)
Quarter: 2010Q4

REPORT INFORMATION
  Report Type: 
  Country: None (occurrence: None)
  Receive Date: 20101028
  Receipt Date: 20101020
  Transmission Date: 20110411
  Serious: Yes (Death, Hospitalization)
  Sender: FDA-Public Use
  Company Number: B0674026A

PATIENT
  Sex: Male
  Weight: 11.8 kg

DRUGS (11)
  1. ALKERAN [Suspect]
     Indication: ALLOGENIC BONE MARROW TRANSPLANTATION THERAPY
     Dosage: 50MGM2 PER DAY
     Route: 042
     Dates: start: 20080720, end: 20080721
  2. TACROLIMUS [Suspect]
     Indication: IMMUNOSUPPRESSION
     Dosage: .24MG PER DAY
     Route: 065
     Dates: start: 20080724, end: 20080824
  3. METHOTREXATE [Suspect]
     Indication: IMMUNOSUPPRESSION
     Dosage: 8.4MG PER DAY
     Route: 065
     Dates: start: 20080725, end: 20080804
  4. FUROSEMIDE [Suspect]
     Dosage: 5MG PER DAY
     Route: 042
     Dates: start: 20080801
  5. FLUDARA [Concomitant]
     Dosage: 17MGM2 PER DAY
     Route: 042
     Dates: start: 20080716, end: 20080719
  6. GRAN [Concomitant]
     Route: 058
     Dates: start: 20080729, end: 20080820
  7. FRAGMIN [Concomitant]
     Dosage: 900IU PER DAY
     Route: 042
     Dates: start: 20080714
  8. VICCLOX [Concomitant]
     Dosage: 125MG PER DAY
     Route: 042
     Dates: start: 20080717, end: 20080828
  9. IMMUNE GLOBULIN INTRAVENOUS (HUMAN) [Concomitant]
     Dosage: 2.5G PER DAY
     Route: 042
     Dates: start: 20080724
  10. SODIUM CHLORIDE [Concomitant]
     Dosage: 20ML PER DAY
     Dates: start: 20080730, end: 20080826
  11. ASPARA K [Concomitant]
     Dosage: 15MEQ PER DAY
     Route: 042
     Dates: start: 20080809, end: 20080830

REACTIONS (24)
  - ALANINE AMINOTRANSFERASE INCREASED [None]
  - ALTERED STATE OF CONSCIOUSNESS [None]
  - ASPARTATE AMINOTRANSFERASE INCREASED [None]
  - BILIRUBIN CONJUGATED INCREASED [None]
  - BLOOD ALKALINE PHOSPHATASE INCREASED [None]
  - BLOOD BILIRUBIN UNCONJUGATED INCREASED [None]
  - BLOOD CALCIUM DECREASED [None]
  - BLOOD LACTATE DEHYDROGENASE INCREASED [None]
  - BLOOD UREA INCREASED [None]
  - CIRCULATORY COLLAPSE [None]
  - DEHYDRATION [None]
  - DISSEMINATED INTRAVASCULAR COAGULATION [None]
  - GAMMA-GLUTAMYLTRANSFERASE INCREASED [None]
  - HAEMORRHAGE INTRACRANIAL [None]
  - HISTIOCYTOSIS HAEMATOPHAGIC [None]
  - HYPERKALAEMIA [None]
  - HYPOCALCAEMIA [None]
  - HYPOKALAEMIA [None]
  - LIVER DISORDER [None]
  - PNEUMONIA FUNGAL [None]
  - RESPIRATORY ARREST [None]
  - SEPSIS [None]
  - STOMATITIS [None]
  - THROMBOTIC MICROANGIOPATHY [None]
